FAERS Safety Report 7675800-5 (Version None)
Quarter: 2011Q3

REPORT INFORMATION
  Report Type: 
  Country: None (occurrence: None)
  Receive Date: 20110810
  Receipt Date: 20110801
  Transmission Date: 20111222
  Serious: Yes (Hospitalization)
  Sender: FDA-Public Use
  Company Number: BR-ASTRAZENECA-2011SE46269

PATIENT
  Age: 74 Year
  Sex: Male
  Weight: 79 kg

DRUGS (1)
  1. ATACAND HCT [Suspect]
     Indication: HYPERTENSION
     Dosage: 16/12.5 MILLIGRAM
     Route: 048
     Dates: start: 20010101

REACTIONS (3)
  - ARTERIAL OCCLUSIVE DISEASE [None]
  - ANGIOPLASTY [None]
  - PROSTATE CANCER [None]
